FAERS Safety Report 21650699 (Version 1)
Quarter: 2022Q4

REPORT INFORMATION
  Report Type: Spontaneous
  Country: US (occurrence: US)
  Receive Date: 20221128
  Receipt Date: 20221128
  Transmission Date: 20230113
  Serious: No
  Sender: FDA-Public Use
  Company Number: US-PFIZER INC-202201322480

PATIENT
  Age: 43 Year
  Sex: Female
  Weight: 67.12 kg

DRUGS (2)
  1. PAXLOVID [Suspect]
     Active Substance: NIRMATRELVIR\RITONAVIR
     Indication: COVID-19 treatment
     Dosage: 3 DF, 2X/DAY (2 PILLS OF NIRMATRELVIR AND 1 PILL OF RITONAVIR)
     Dates: start: 20221119
  2. FLUOXETINE [Concomitant]
     Active Substance: FLUOXETINE HYDROCHLORIDE
     Indication: Premenstrual dysphoric disorder
     Dosage: 20 MG, DAILY ( EVERY MORNING BY MOUTH)
     Route: 048

REACTIONS (6)
  - Somnolence [Unknown]
  - Muscle spasms [Not Recovered/Not Resolved]
  - Dysgeusia [Not Recovered/Not Resolved]
  - Fatigue [Unknown]
  - Diarrhoea [Unknown]
  - Malaise [Unknown]

NARRATIVE: CASE EVENT DATE: 20221101
